FAERS Safety Report 15793458 (Version 5)
Quarter: 2022Q1

REPORT INFORMATION
  Report Type: Spontaneous
  Country: US (occurrence: US)
  Receive Date: 20190107
  Receipt Date: 20220125
  Transmission Date: 20220423
  Serious: No
  Sender: FDA-Public Use
  Company Number: US-PFIZER INC-2019005482

PATIENT
  Age: 64 Year
  Sex: Male
  Weight: 79 kg

DRUGS (7)
  1. RAPAMUNE [Suspect]
     Active Substance: SIROLIMUS
     Indication: Lung transplant
     Dosage: 1.5 MG, 1X/DAY [THREE TABLETS EVERY MORNING]
     Route: 048
  2. RAPAMUNE [Suspect]
     Active Substance: SIROLIMUS
     Indication: Immune system disorder
     Dosage: 1 MG, DAILY (1 MG, TAKE 1 TABLET DAILY)
  3. RAPAMUNE [Suspect]
     Active Substance: SIROLIMUS
     Indication: Depression
     Dosage: 0.5 MG + 1 MG, DAILY
  4. RAPAMUNE [Suspect]
     Active Substance: SIROLIMUS
     Indication: Secondary hypertension
  5. RAPAMUNE [Suspect]
     Active Substance: SIROLIMUS
     Indication: Chronic kidney disease
  6. RAPAMUNE [Suspect]
     Active Substance: SIROLIMUS
     Indication: Acute kidney injury
  7. RAPAMUNE [Suspect]
     Active Substance: SIROLIMUS
     Indication: Lung transplant rejection

REACTIONS (5)
  - Hypertension [Unknown]
  - Dyspnoea [Unknown]
  - Tremor [Unknown]
  - Headache [Unknown]
  - Off label use [Unknown]
